FAERS Safety Report 13651463 (Version 1)
Quarter: 2017Q2

REPORT INFORMATION
  Report Type: Spontaneous
  Country: US (occurrence: US)
  Receive Date: 20170614
  Receipt Date: 20170614
  Transmission Date: 20170830
  Serious: Yes (Hospitalization, Other)
  Sender: FDA-Public Use
  Company Number: US-SAOL THERAPEUTICS-2017SAO00746

PATIENT
  Age: 59 Year
  Sex: Male
  Weight: 63.49 kg

DRUGS (2)
  1. LIORESAL [Suspect]
     Active Substance: BACLOFEN
     Indication: CEREBROVASCULAR ACCIDENT
  2. LIORESAL [Suspect]
     Active Substance: BACLOFEN
     Indication: MUSCLE SPASTICITY
     Dosage: 619.9 ?G, \DAY
     Route: 037
     Dates: start: 2009

REACTIONS (4)
  - Weight decreased [Unknown]
  - Implant site infection [Unknown]
  - Muscle spasticity [Unknown]
  - Sepsis [Unknown]

NARRATIVE: CASE EVENT DATE: 201704
